FAERS Safety Report 15319824 (Version 1)
Quarter: 2018Q3

REPORT INFORMATION
  Report Type: Spontaneous
  Country: US (occurrence: US)
  Receive Date: 20180827
  Receipt Date: 20180827
  Transmission Date: 20181010
  Serious: No
  Sender: FDA-Public Use
  Company Number: US-BIOGEN-2018BI00622749

PATIENT
  Age: 56 Year
  Sex: Male

DRUGS (6)
  1. IBUPROFEN. [Concomitant]
     Active Substance: IBUPROFEN
  2. TECFIDERA [Suspect]
     Active Substance: DIMETHYL FUMARATE
     Route: 048
     Dates: start: 20180614, end: 20180718
  3. LIDOCAINE. [Concomitant]
     Active Substance: LIDOCAINE
  4. TYLENOL [Concomitant]
     Active Substance: ACETAMINOPHEN
  5. TECFIDERA [Suspect]
     Active Substance: DIMETHYL FUMARATE
     Indication: MULTIPLE SCLEROSIS
     Route: 048
     Dates: start: 20180614, end: 20180718
  6. RELPAX [Concomitant]
     Active Substance: ELETRIPTAN HYDROBROMIDE

REACTIONS (12)
  - Nausea [Not Recovered/Not Resolved]
  - Pain [Recovered/Resolved]
  - Decreased appetite [Not Recovered/Not Resolved]
  - Decreased interest [Unknown]
  - Decreased activity [Unknown]
  - Flushing [Not Recovered/Not Resolved]
  - Muscle spasms [Not Recovered/Not Resolved]
  - Depression [Not Recovered/Not Resolved]
  - Dysstasia [Unknown]
  - Drug ineffective [Recovered/Resolved]
  - Fatigue [Not Recovered/Not Resolved]
  - Dizziness [Recovered/Resolved]

NARRATIVE: CASE EVENT DATE: 20180614
